FAERS Safety Report 9395073 (Version 1)
Quarter: 2013Q3

REPORT INFORMATION
  Report Type: Report from Study
  Country: CA (occurrence: CA)
  Receive Date: 20130711
  Receipt Date: 20130711
  Transmission Date: 20140515
  Serious: Yes (Other)
  Sender: FDA-Public Use
  Company Number: CA-JNJFOC-20130704565

PATIENT
  Sex: Male
  Weight: 145.61 kg

DRUGS (1)
  1. REMICADE [Suspect]
     Indication: CROHN^S DISEASE
     Route: 042
     Dates: start: 201102

REACTIONS (6)
  - Bone disorder [Unknown]
  - Carpal tunnel syndrome [Unknown]
  - Anal fistula [Unknown]
  - Dysgraphia [Unknown]
  - Crohn^s disease [Unknown]
  - Vomiting projectile [Unknown]
